FAERS Safety Report 8582077-5 (Version None)
Quarter: 2012Q3

REPORT INFORMATION
  Report Type: 
  Country: None (occurrence: None)
  Receive Date: 20120809
  Receipt Date: 20120808
  Transmission Date: 20120928
  Serious: Yes (Hospitalization)
  Sender: FDA-Public Use
  Company Number: FR-PFIZER INC-2012187989

PATIENT
  Age: 75 Year
  Sex: Male

DRUGS (3)
  1. LEVOTHYROXINE SODIUM [Suspect]
     Indication: HYPOTHYROIDISM
     Dosage: 50 UG, DAILY
     Route: 048
  2. CORDARONE [Suspect]
     Indication: ATRIAL FIBRILLATION
     Dosage: 200 MG, DAILY
     Route: 048
     Dates: start: 20090101, end: 20120401
  3. PREVISCAN [Suspect]
     Indication: ATRIAL FIBRILLATION
     Dosage: 20 MG, DAILY
     Route: 048
     Dates: start: 20090101

REACTIONS (4)
  - EOSINOPHILIA [None]
  - RASH PUSTULAR [None]
  - WEIGHT DECREASED [None]
  - GENERAL PHYSICAL HEALTH DETERIORATION [None]
